FAERS Safety Report 6218512-7 (Version None)
Quarter: 2009Q2

REPORT INFORMATION
  Report Type: 
  Country: None (occurrence: None)
  Receive Date: 20090604
  Receipt Date: 20090604
  Transmission Date: 20091009
  Serious: No
  Sender: FDA-Public Use
  Company Number: None

PATIENT
  Age: 47 Year
  Weight: 154.223 kg

DRUGS (1)
  1. CIPRO XR [Suspect]
     Indication: LOCALISED INFECTION
     Dates: start: 20080616, end: 20080621

REACTIONS (6)
  - DRUG HYPERSENSITIVITY [None]
  - GAIT DISTURBANCE [None]
  - LIGAMENT DISORDER [None]
  - MUSCLE SPASMS [None]
  - MUSCULOSKELETAL PAIN [None]
  - TENDON DISORDER [None]
